FAERS Safety Report 17507045 (Version 1)
Quarter: 2020Q1

REPORT INFORMATION
  Report Type: Spontaneous
  Country: US (occurrence: US)
  Receive Date: 20200306
  Receipt Date: 20200306
  Transmission Date: 20200409
  Serious: Yes (Hospitalization, Other)
  Sender: FDA-Public Use
  Company Number: US-TEVA-2020-US-1193805

PATIENT
  Sex: Female

DRUGS (6)
  1. RUBRACA [Suspect]
     Active Substance: RUCAPARIB CAMSYLATE
     Route: 048
     Dates: start: 20190725, end: 201910
  2. RUBRACA [Suspect]
     Active Substance: RUCAPARIB CAMSYLATE
     Route: 048
     Dates: start: 20191010
  3. RUBRACA [Suspect]
     Active Substance: RUCAPARIB CAMSYLATE
     Route: 048
     Dates: start: 20191008, end: 20200120
  4. GABAPENTIN. [Suspect]
     Active Substance: GABAPENTIN
     Indication: SCIATICA
     Route: 065
  5. RUBRACA [Suspect]
     Active Substance: RUCAPARIB CAMSYLATE
     Route: 065
     Dates: start: 20190108
  6. RUBRACA [Suspect]
     Active Substance: RUCAPARIB CAMSYLATE
     Route: 048
     Dates: start: 20200205

REACTIONS (13)
  - Somnolence [Unknown]
  - Sciatica [Unknown]
  - Back pain [Unknown]
  - Pyrexia [Unknown]
  - Chest pain [Unknown]
  - Platelet count decreased [Unknown]
  - Red blood cell count decreased [Unknown]
  - Blood potassium decreased [Unknown]
  - White blood cell count decreased [Unknown]
  - Fatigue [Unknown]
  - Neoplasm progression [Unknown]
  - Haemoglobin decreased [Unknown]
  - Vomiting [Unknown]

NARRATIVE: CASE EVENT DATE: 2019
